FAERS Safety Report 11325017 (Version 1)
Quarter: 2015Q3

REPORT INFORMATION
  Report Type: Spontaneous
  Country: US (occurrence: US)
  Receive Date: 20150730
  Receipt Date: 20150730
  Transmission Date: 20151125
  Serious: No
  Sender: FDA-Public Use
  Company Number: US-BAYER-2015-390693

PATIENT
  Age: 47 Year
  Sex: Female

DRUGS (3)
  1. BETASERON [Suspect]
     Active Substance: INTERFERON BETA-1B
     Indication: MULTIPLE SCLEROSIS
     Dosage: 0.5 ML, QOD (WEEKS3-4)
     Route: 058
  2. BETASERON [Suspect]
     Active Substance: INTERFERON BETA-1B
     Indication: MULTIPLE SCLEROSIS
     Dosage: 0.75 ML, QOD (WEEK 5 AND THEREAFTER)
     Route: 058
  3. BETASERON [Suspect]
     Active Substance: INTERFERON BETA-1B
     Indication: MULTIPLE SCLEROSIS
     Dosage: 0.25 ML, QOD (WEEKS1-2)
     Route: 058
     Dates: start: 20110622

REACTIONS (1)
  - Injection site swelling [None]

NARRATIVE: CASE EVENT DATE: 20150728
